FAERS Safety Report 13690885 (Version 1)
Quarter: 2017Q2

REPORT INFORMATION
  Report Type: Spontaneous
  Country: US (occurrence: US)
  Receive Date: 20170626
  Receipt Date: 20170626
  Transmission Date: 20170830
  Serious: No
  Sender: FDA-Public Use
  Company Number: US-DSJP-DSU-2016-135823

PATIENT
  Age: 73 Year
  Sex: Female
  Weight: 74.83 kg

DRUGS (4)
  1. UNKNOWN MEDICATION [Concomitant]
     Active Substance: UNSPECIFIED INGREDIENT
     Indication: GASTROOESOPHAGEAL REFLUX DISEASE
     Dosage: UNK
  2. WELCHOL [Suspect]
     Active Substance: COLESEVELAM HYDROCHLORIDE
     Indication: HYPERLIPIDAEMIA
     Dosage: 1875 MG, BID
     Route: 048
  3. RED YEAST RICE [Interacting]
     Active Substance: DIETARY SUPPLEMENT
     Dosage: 2 TABLET/CAPSULE, BID
     Route: 048
     Dates: start: 201610
  4. RED YEAST RICE [Interacting]
     Active Substance: DIETARY SUPPLEMENT
     Indication: HYPERLIPIDAEMIA
     Dosage: 1 TABLET/CAPSULE, BID
     Route: 048
     Dates: start: 2016, end: 2016

REACTIONS (3)
  - Low density lipoprotein increased [Unknown]
  - Blood cholesterol increased [Unknown]
  - Drug interaction [Unknown]

NARRATIVE: CASE EVENT DATE: 2016
